FAERS Safety Report 21848234 (Version 1)
Quarter: 2023Q1

REPORT INFORMATION
  Report Type: Spontaneous
  Country: US (occurrence: None)
  Receive Date: 20230110
  Receipt Date: 20230110
  Transmission Date: 20230418
  Serious: Yes (Other)
  Sender: FDA-Public Use
  Company Number: None

PATIENT
  Age: 32 Year
  Sex: Female

DRUGS (1)
  1. BUPRENORPHINE HYDROCHLORIDE\NALOXONE HYDROCHLORIDE [Suspect]
     Active Substance: BUPRENORPHINE HYDROCHLORIDE\NALOXONE HYDROCHLORIDE
     Indication: Drug dependence
     Dosage: OTHER QUANTITY : 8-2MG, 2TABLETS;?FREQUENCY : DAILY;?
     Route: 060
     Dates: start: 20220523

REACTIONS (3)
  - Nausea [None]
  - Vomiting [None]
  - Incorrect dose administered [None]

NARRATIVE: CASE EVENT DATE: 20230103
